FAERS Safety Report 12137322 (Version 1)
Quarter: 2016Q1

REPORT INFORMATION
  Report Type: Spontaneous
  Country: US (occurrence: US)
  Receive Date: 20160302
  Receipt Date: 20160302
  Transmission Date: 20160526
  Serious: No
  Sender: FDA-Public Use
  Company Number: US-ACTAVIS-2016-00504

PATIENT
  Age: 86 Year
  Sex: Male

DRUGS (2)
  1. OXYTROL [Suspect]
     Active Substance: OXYBUTYNIN
     Indication: BLADDER DISORDER
     Dosage: 7.8 MG, DAILY; 2 PATCHES AT ONCE DAILY
     Route: 062
     Dates: start: 201511
  2. OXYTROL [Suspect]
     Active Substance: OXYBUTYNIN
     Indication: MICTURITION DISORDER

REACTIONS (2)
  - Drug prescribing error [Recovered/Resolved]
  - Feeling hot [Recovered/Resolved]

NARRATIVE: CASE EVENT DATE: 201511
